FAERS Safety Report 8318931-9 (Version None)
Quarter: 2012Q2

REPORT INFORMATION
  Report Type: 
  Country: None (occurrence: None)
  Receive Date: 20120427
  Receipt Date: 20120419
  Transmission Date: 20120825
  Serious: Yes (Other)
  Sender: FDA-Public Use
  Company Number: CA-JNJFOC-20120203940

PATIENT
  Sex: Female
  Weight: 127 kg

DRUGS (4)
  1. REMICADE [Suspect]
     Indication: CROHN'S DISEASE
     Route: 042
     Dates: start: 20101217
  2. CELEXIN [Concomitant]
     Dosage: DOSE UNIT: MG
     Route: 065
  3. PREDNISONE TAB [Concomitant]
     Dosage: DOSE UNIT: MG
     Route: 065
  4. CLONAZEPAM [Concomitant]
     Dosage: DOSE UNIT: MG
     Route: 065

REACTIONS (1)
  - CHOLECYSTECTOMY [None]
